FAERS Safety Report 23633256 (Version 1)
Quarter: 2024Q1

REPORT INFORMATION
  Report Type: Spontaneous
  Country: US (occurrence: None)
  Receive Date: 20240314
  Receipt Date: 20240314
  Transmission Date: 20240410
  Serious: Yes (Life-Threatening, Hospitalization)
  Sender: FDA-Public Use
  Company Number: None

PATIENT
  Age: 16 Year
  Sex: Male
  Weight: 83.25 kg

DRUGS (1)
  1. MONTELUKAST [Suspect]
     Active Substance: MONTELUKAST SODIUM
     Indication: Seasonal allergy
     Dates: start: 20230701, end: 20231030

REACTIONS (4)
  - Product communication issue [None]
  - Depression [None]
  - Suicidal ideation [None]
  - Educational problem [None]

NARRATIVE: CASE EVENT DATE: 20231027
